FAERS Safety Report 12209758 (Version 5)
Quarter: 2016Q3

REPORT INFORMATION
  Report Type: Report from Study
  Country: JP (occurrence: JP)
  Receive Date: 20160325
  Receipt Date: 20160720
  Transmission Date: 20161109
  Serious: Yes (Hospitalization, Other)
  Sender: FDA-Public Use
  Company Number: JP-BRISTOL-MYERS SQUIBB COMPANY-BMS-2016-021341

PATIENT
  Age: 78 Year
  Sex: Male

DRUGS (2)
  1. NIVOLUMAB [Suspect]
     Active Substance: NIVOLUMAB
     Indication: NON-SMALL CELL LUNG CANCER
     Dosage: 3 MG/KG, Q2WK
     Route: 041
     Dates: start: 20160202, end: 20160202
  2. NIVOLUMAB [Suspect]
     Active Substance: NIVOLUMAB
     Dosage: 3 MG/KG, Q2WK
     Route: 041
     Dates: start: 20160216, end: 20160216

REACTIONS (3)
  - Pneumothorax [Recovered/Resolved]
  - Surgery [Unknown]
  - Dementia [Not Recovered/Not Resolved]

NARRATIVE: CASE EVENT DATE: 20160227
